FAERS Safety Report 26008957 (Version 1)
Quarter: 2025Q4

REPORT INFORMATION
  Report Type: Spontaneous
  Country: US (occurrence: US)
  Receive Date: 20251106
  Receipt Date: 20251106
  Transmission Date: 20260117
  Serious: No
  Sender: SANOFI AVENTIS
  Company Number: US-SA-2025SA326730

PATIENT
  Age: 84 Year
  Sex: Female

DRUGS (3)
  1. DUPIXENT [Suspect]
     Active Substance: DUPILUMAB
     Indication: Chronic obstructive pulmonary disease
     Dosage: 600 MG, 1X
     Route: 058
     Dates: start: 20250922, end: 20250922
  2. DUPIXENT [Suspect]
     Active Substance: DUPILUMAB
     Dosage: 300 MG, ON DAY 16
     Route: 058
     Dates: start: 20251008, end: 20251008
  3. DUPIXENT [Suspect]
     Active Substance: DUPILUMAB
     Dosage: 300 MG, QOW
     Route: 058
     Dates: start: 20251022

REACTIONS (8)
  - Dyspnoea exertional [Not Recovered/Not Resolved]
  - Asthenia [Unknown]
  - Condition aggravated [Unknown]
  - Rhinorrhoea [Unknown]
  - Nasal congestion [Unknown]
  - Headache [Unknown]
  - Ocular hyperaemia [Unknown]
  - Extra dose administered [Unknown]

NARRATIVE: CASE EVENT DATE: 20250101
